FAERS Safety Report 11896647 (Version 1)
Quarter: 2016Q1

REPORT INFORMATION
  Report Type: Spontaneous
  Country: CH (occurrence: CH)
  Receive Date: 20160107
  Receipt Date: 20160107
  Transmission Date: 20160526
  Serious: Yes (Other)
  Sender: FDA-Public Use
  Company Number: CH-LPDUSPRD-20151073

PATIENT
  Age: 21 Year
  Sex: Female
  Weight: 65 kg

DRUGS (2)
  1. FERINJECT [Suspect]
     Active Substance: FERRIC CARBOXYMALTOSE
     Dosage: 500 MG DILUTED IN 250 ML NACL
     Route: 041
     Dates: start: 20151204, end: 20151204
  2. TAVEGYL [Suspect]
     Active Substance: CLEMASTINE FUMARATE
     Dosage: 1 DOSAGE FORM
     Route: 042
     Dates: start: 20151204, end: 20151204

REACTIONS (6)
  - Abdominal discomfort [Unknown]
  - Erythema [Unknown]
  - Head discomfort [Unknown]
  - Ocular hyperaemia [Unknown]
  - Vomiting [Unknown]
  - Malaise [Unknown]

NARRATIVE: CASE EVENT DATE: 20151204
